FAERS Safety Report 13910664 (Version 4)
Quarter: 2018Q4

REPORT INFORMATION
  Report Type: Spontaneous
  Country: US (occurrence: US)
  Receive Date: 20170828
  Receipt Date: 20181206
  Transmission Date: 20190204
  Serious: Yes (Life-Threatening, Hospitalization, Other)
  Sender: FDA-Public Use
  Company Number: US-MYLANLABS-2017M1053349

PATIENT
  Age: 34 Year
  Sex: Female

DRUGS (11)
  1. CLOZAPINE. [Suspect]
     Active Substance: CLOZAPINE
     Indication: BIPOLAR DISORDER
     Dosage: UNK
  2. BROMOCRIPTINE [Suspect]
     Active Substance: BROMOCRIPTINE
     Indication: NEUROLEPTIC MALIGNANT SYNDROME
     Dosage: UNK
  3. FLUPHENAZINE [Suspect]
     Active Substance: FLUPHENAZINE
     Indication: TACHYCARDIA
     Dosage: UNK
  4. CLOZAPINE. [Suspect]
     Active Substance: CLOZAPINE
     Indication: NEUROLEPTIC MALIGNANT SYNDROME
     Dosage: UNK
  5. DEXMEDETOMIDINE. [Suspect]
     Active Substance: DEXMEDETOMIDINE
     Indication: DELIRIUM
     Dosage: UNK
  6. LITHIUM. [Suspect]
     Active Substance: LITHIUM
     Dosage: UNK
  7. CHLORPROMAZINE. [Suspect]
     Active Substance: CHLORPROMAZINE
     Indication: TACHYCARDIA
     Dosage: UNK
  8. CHLORPROMAZINE. [Suspect]
     Active Substance: CHLORPROMAZINE
     Indication: AGITATION
     Dosage: UNK
  9. FLUPHENAZINE [Suspect]
     Active Substance: FLUPHENAZINE
     Indication: AGITATION
     Dosage: UNK
  10. RISPERIDONE. [Suspect]
     Active Substance: RISPERIDONE
     Indication: BIPOLAR DISORDER
     Dosage: UNK
  11. LITHIUM. [Suspect]
     Active Substance: LITHIUM
     Indication: BIPOLAR DISORDER
     Dosage: UNK

REACTIONS (24)
  - Acute kidney injury [Unknown]
  - Depression [Unknown]
  - Disturbance in attention [Unknown]
  - Delirium [Unknown]
  - Paranoia [Recovering/Resolving]
  - Neuroleptic malignant syndrome [Recovering/Resolving]
  - Anuria [Unknown]
  - Muscle rigidity [Recovering/Resolving]
  - Clonus [Recovering/Resolving]
  - Catatonia [Recovered/Resolved]
  - Maternal exposure during pregnancy [Unknown]
  - Abnormal behaviour [Recovering/Resolving]
  - Rhabdomyolysis [Unknown]
  - Constipation [Unknown]
  - Hypophagia [Recovering/Resolving]
  - Leukocytosis [Unknown]
  - Agitation [Recovering/Resolving]
  - Product use in unapproved indication [Unknown]
  - Mutism [Recovering/Resolving]
  - Thinking abnormal [Recovering/Resolving]
  - Tachycardia [Recovering/Resolving]
  - Insomnia [Unknown]
  - Pyrexia [Recovering/Resolving]
  - Urinary retention [Unknown]
